FAERS Safety Report 5648022-7 (Version None)
Quarter: 2008Q1

REPORT INFORMATION
  Report Type: 
  Country: None (occurrence: None)
  Receive Date: 20080229
  Receipt Date: 20080229
  Transmission Date: 20080703
  Serious: Yes (Hospitalization)
  Sender: FDA-Public Use
  Company Number: None

PATIENT
  Sex: Male
  Weight: 113.2 kg

DRUGS (3)
  1. MERCAPTOPURINE [Suspect]
     Dosage: 5800 MG
  2. VINCRISTINE SULFATE [Suspect]
     Dosage: 4 MG
  3. DEXAMETHASONE TAB [Suspect]
     Dosage: 140 MG

REACTIONS (6)
  - BILIRUBIN CONJUGATED INCREASED [None]
  - BLOOD BILIRUBIN INCREASED [None]
  - HEPATIC CIRRHOSIS [None]
  - ILL-DEFINED DISORDER [None]
  - IRON OVERLOAD [None]
  - TRANSAMINASES INCREASED [None]
